FAERS Safety Report 14236341 (Version 2)
Quarter: 2018Q1

REPORT INFORMATION
  Report Type: Report from Study
  Country: US (occurrence: US)
  Receive Date: 20171129
  Receipt Date: 20180105
  Transmission Date: 20180508
  Serious: Yes (Other)
  Sender: FDA-Public Use
  Company Number: US-TAKEDA-2017TUS024284

PATIENT
  Age: 53 Year
  Sex: Female
  Weight: 86 kg

DRUGS (4)
  1. PREDNISONE. [Concomitant]
     Active Substance: PREDNISONE
     Dosage: UNK UNK, QD
  2. VEDOLIZUMAB [Suspect]
     Active Substance: VEDOLIZUMAB
     Indication: COLITIS ULCERATIVE
     Dosage: 300 MG, UNK
     Route: 042
     Dates: start: 201706
  3. METHOTREXATE (METHOTREXATE SODIUM) [Concomitant]
     Active Substance: METHOTREXATE SODIUM
     Indication: COLITIS ULCERATIVE
     Dosage: 15 MG, 1/WEEK
     Route: 048
     Dates: start: 201706
  4. FOLATE [Concomitant]
     Active Substance: FOLATE SODIUM
     Dosage: 1 MG, QD
     Route: 048

REACTIONS (1)
  - Intraductal proliferative breast lesion [Not Recovered/Not Resolved]

NARRATIVE: CASE EVENT DATE: 201709
